FAERS Safety Report 20691167 (Version 1)
Quarter: 2022Q2

REPORT INFORMATION
  Report Type: Spontaneous
  Country: US (occurrence: US)
  Receive Date: 20220408
  Receipt Date: 20220408
  Transmission Date: 20220720
  Serious: No
  Sender: FDA-Public Use
  Company Number: US-INTRA-CELLULAR THERAPIES, INC.-2021ICT00742

PATIENT
  Age: 30 Year
  Sex: Male
  Weight: 145.13 kg

DRUGS (2)
  1. CAPLYTA [Suspect]
     Active Substance: LUMATEPERONE
     Indication: Schizoaffective disorder depressive type
     Dosage: 42 MG, 1X/DAY
     Dates: start: 202102
  2. CAPLYTA [Suspect]
     Active Substance: LUMATEPERONE
     Indication: Anxiety

REACTIONS (5)
  - Insomnia [Unknown]
  - Off label use [Not Recovered/Not Resolved]
  - Sedation [Unknown]
  - Somnolence [Unknown]
  - Unevaluable event [Not Recovered/Not Resolved]

NARRATIVE: CASE EVENT DATE: 20210201
